FAERS Safety Report 10163445 (Version 3)
Quarter: 2016Q4

REPORT INFORMATION
  Report Type: Spontaneous
  Country: FR (occurrence: FR)
  Receive Date: 20140509
  Receipt Date: 20161017
  Transmission Date: 20170206
  Serious: Yes (Other)
  Sender: FDA-Public Use
  Company Number: PHHY2014FR050197

PATIENT
  Sex: Male

DRUGS (2)
  1. RITALINE LP [Suspect]
     Active Substance: METHYLPHENIDATE HYDROCHLORIDE
     Indication: OFF LABEL USE
     Dosage: 20 MG, THREE TIMES DAILY
     Route: 048
  2. RITALINE LP [Suspect]
     Active Substance: METHYLPHENIDATE HYDROCHLORIDE
     Dosage: UNK
     Route: 042

REACTIONS (2)
  - Intentional product misuse [Unknown]
  - Aggression [Unknown]
